FAERS Safety Report 9380498 (Version 2)
Quarter: 2013Q3

REPORT INFORMATION
  Report Type: Report from Study
  Country: US (occurrence: US)
  Receive Date: 20130702
  Receipt Date: 20130730
  Transmission Date: 20140515
  Serious: Yes (Hospitalization)
  Sender: FDA-Public Use
  Company Number: US-ACTELION-A-US2012-75503

PATIENT
  Age: 55 Year
  Sex: Female

DRUGS (2)
  1. VELETRI [Suspect]
     Indication: PULMONARY ARTERIAL HYPERTENSION
     Dosage: 30.5 NG/KG, PER MIN
     Route: 042
     Dates: start: 20111116
  2. BENADRYL [Concomitant]

REACTIONS (8)
  - Medication error [Unknown]
  - Drug dose omission [Unknown]
  - Myalgia [Unknown]
  - Erythema [Unknown]
  - Asthenia [Unknown]
  - Pain in jaw [Unknown]
  - Fatigue [Unknown]
  - Pallor [Unknown]
